FAERS Safety Report 5959577-7 (Version None)
Quarter: 2008Q4

REPORT INFORMATION
  Report Type: 
  Country: None (occurrence: None)
  Receive Date: 20081118
  Receipt Date: 20081106
  Transmission Date: 20090506
  Serious: Yes (Death, Disabling)
  Sender: FDA-Public Use
  Company Number: 2008-03499

PATIENT
  Age: 64 Year
  Sex: Female
  Weight: 48 kg

DRUGS (2)
  1. VELCADE [Suspect]
     Indication: MULTIPLE MYELOMA
     Dosage: 1.4 MG, INTRAVENOUS
     Route: 042
     Dates: start: 20080624, end: 20080704
  2. DECADRON [Concomitant]

REACTIONS (23)
  - ACUTE RESPIRATORY FAILURE [None]
  - ANGIOPATHY [None]
  - ATAXIA [None]
  - BLOOD CULTURE POSITIVE [None]
  - BONE MARROW FAILURE [None]
  - BRONCHOPULMONARY ASPERGILLOSIS [None]
  - CYTOMEGALOVIRUS ANTIGEN POSITIVE [None]
  - CYTOMEGALOVIRUS INFECTION [None]
  - DIFFUSE ALVEOLAR DAMAGE [None]
  - DISEASE RECURRENCE [None]
  - DRUG INEFFECTIVE [None]
  - FUNGUS SEROLOGY TEST POSITIVE [None]
  - HEPATIC STEATOSIS [None]
  - HYPOAESTHESIA [None]
  - LUNG DISORDER [None]
  - NEURALGIA [None]
  - NEUROPATHY PERIPHERAL [None]
  - PLEURAL EFFUSION [None]
  - PNEUMONIA [None]
  - QUADRIPLEGIA [None]
  - RENAL TUBULAR ATROPHY [None]
  - STAPHYLOCOCCAL INFECTION [None]
  - UTERINE LEIOMYOMA [None]
